FAERS Safety Report 7183766-X (Version None)
Quarter: 2010Q4

REPORT INFORMATION
  Report Type: 
  Country: None (occurrence: None)
  Receive Date: 20101220
  Receipt Date: 20101220
  Transmission Date: 20110411
  Serious: Yes (Hospitalization)
  Sender: FDA-Public Use
  Company Number: None

PATIENT
  Age: 66 Year
  Sex: Female

DRUGS (10)
  1. ERBITUX [Suspect]
     Indication: CHEMOTHERAPY
     Dosage: PORT IV
     Route: 042
     Dates: start: 20100715
  2. TOPROL-XL [Concomitant]
  3. LIDOCAINE HCL VISCOUS [Concomitant]
  4. OXYCODONE HCL [Concomitant]
  5. FENTANYL-100 [Concomitant]
  6. VICODIN [Concomitant]
  7. PROCHLORPERAZINE [Concomitant]
  8. METHYLPHENIDATE [Concomitant]
  9. MORPHINE [Concomitant]
  10. DIAZEPAM [Concomitant]

REACTIONS (6)
  - ANAPHYLACTIC REACTION [None]
  - MUCOSAL INFLAMMATION [None]
  - RESPIRATORY DISTRESS [None]
  - SEPSIS [None]
  - SWELLING FACE [None]
  - WHITE BLOOD CELL COUNT INCREASED [None]
